FAERS Safety Report 8445286 (Version 2)
Quarter: 2015Q1

REPORT INFORMATION
  Report Type: Spontaneous
  Country: US (occurrence: US)
  Receive Date: 20120307
  Receipt Date: 20150225
  Transmission Date: 20150721
  Serious: Yes (Other)
  Sender: FDA-Public Use
  Company Number: US-ROCHE-794325

PATIENT
  Age: 45 Year
  Sex: Female
  Weight: 77.18 kg

DRUGS (3)
  1. ACCUTANE [Suspect]
     Active Substance: ISOTRETINOIN
     Route: 048
     Dates: start: 19900306, end: 19930531
  2. ACCUTANE [Suspect]
     Active Substance: ISOTRETINOIN
     Indication: ACNE
     Route: 048
  3. ACCUTANE [Suspect]
     Active Substance: ISOTRETINOIN
     Route: 065

REACTIONS (4)
  - Inflammatory bowel disease [Unknown]
  - Pruritus [Unknown]
  - Irritable bowel syndrome [Unknown]
  - Acne [Unknown]

NARRATIVE: CASE EVENT DATE: 1990
